FAERS Safety Report 7899646-8 (Version None)
Quarter: 2011Q4

REPORT INFORMATION
  Report Type: 
  Country: None (occurrence: None)
  Receive Date: 20111107
  Receipt Date: 20110916
  Transmission Date: 20120403
  Serious: No
  Sender: FDA-Public Use
  Company Number: US-AMGEN-USASP2011036854

PATIENT
  Age: 58 Year
  Sex: Female

DRUGS (2)
  1. METHOTREXATE [Concomitant]
     Dosage: UNK
     Dates: start: 20090101
  2. ENBREL [Suspect]
     Indication: RHEUMATOID ARTHRITIS
     Dosage: 50 MG, QWK
     Dates: start: 20110707

REACTIONS (9)
  - DIZZINESS [None]
  - ARTHRALGIA [None]
  - FATIGUE [None]
  - TREMOR [None]
  - JOINT SWELLING [None]
  - HEADACHE [None]
  - LETHARGY [None]
  - HYPERGLYCAEMIA [None]
  - HYPOGLYCAEMIA [None]
